FAERS Safety Report 16103559 (Version 3)
Quarter: 2020Q3

REPORT INFORMATION
  Report Type: Spontaneous
  Country: US (occurrence: US)
  Receive Date: 20190322
  Receipt Date: 20200731
  Transmission Date: 20201102
  Serious: No
  Sender: FDA-Public Use
  Company Number: US-SA-2019SA074467

PATIENT

DRUGS (3)
  1. DUPIXENT [Suspect]
     Active Substance: DUPILUMAB
     Dosage: UNK
     Dates: start: 201903, end: 2019
  2. DUPIXENT [Suspect]
     Active Substance: DUPILUMAB
     Dosage: 300 MG, OTHER
     Route: 058
     Dates: start: 201910, end: 202003
  3. DUPIXENT [Suspect]
     Active Substance: DUPILUMAB
     Dosage: 600 MG, 1X
     Route: 058
     Dates: start: 20190306, end: 20190306

REACTIONS (10)
  - Sinusitis [Unknown]
  - Wheezing [Unknown]
  - Surgery [Unknown]
  - Chills [Recovered/Resolved]
  - Rhinorrhoea [Unknown]
  - Dysphonia [Unknown]
  - Laryngitis [Unknown]
  - Cough [Unknown]
  - Dermatitis atopic [Unknown]
  - Nasal congestion [Unknown]

NARRATIVE: CASE EVENT DATE: 20190306
